FAERS Safety Report 10591854 (Version 1)
Quarter: 2014Q4

REPORT INFORMATION
  Report Type: Report from Study
  Country: NL (occurrence: NL)
  Receive Date: 20141119
  Receipt Date: 20141119
  Transmission Date: 20150529
  Serious: Yes (Death)
  Sender: FDA-Public Use
  Company Number: NL-AMGEN-NLDSL2013094552

PATIENT
  Age: 79 Year
  Sex: Male

DRUGS (1)
  1. XGEVA [Suspect]
     Active Substance: DENOSUMAB
     Indication: PRODUCT USED FOR UNKNOWN INDICATION
     Dosage: 120 MG, Q4WK
     Route: 065
     Dates: start: 20120731, end: 20130604

REACTIONS (10)
  - Bone pain [Unknown]
  - Frequent bowel movements [Unknown]
  - Confusional state [Unknown]
  - Diarrhoea [Unknown]
  - Urinary tract infection [Unknown]
  - Death [Fatal]
  - Constipation [Unknown]
  - General physical health deterioration [Unknown]
  - Memory impairment [Unknown]
  - Genital infection fungal [Unknown]
